FAERS Safety Report 7423091-2 (Version None)
Quarter: 2011Q2

REPORT INFORMATION
  Report Type: 
  Country: None (occurrence: None)
  Receive Date: 20110419
  Receipt Date: 20110411
  Transmission Date: 20111010
  Serious: Yes (Other)
  Sender: FDA-Public Use
  Company Number: GB-AMGEN-GBRSP2011017221

PATIENT
  Age: 51 Year
  Sex: Female
  Weight: 103.5 kg

DRUGS (7)
  1. DEXAMETHASONE [Concomitant]
     Indication: BREAST CANCER
     Dosage: 9 MG, UNK
     Route: 042
     Dates: start: 20110318
  2. EPIRUBICIN [Concomitant]
     Indication: BREAST CANCER
     Dosage: 200 MG, UNK
     Route: 042
     Dates: start: 20110318
  3. CYCLOSPORINE [Concomitant]
  4. TAXOTERE [Concomitant]
  5. FLUOROURACIL                       /00098802/ [Concomitant]
     Indication: BREAST CANCER
     Dosage: 1000 MG, UNK
     Route: 042
     Dates: start: 20110313
  6. ONDANSETRON [Concomitant]
     Indication: BREAST CANCER
     Dosage: 8 MG, UNK
     Route: 042
     Dates: start: 20110313
  7. NEUPOGEN [Suspect]
     Indication: CHEMOTHERAPY
     Dosage: 300 A?G, QD
     Route: 058
     Dates: start: 20110319, end: 20110323

REACTIONS (1)
  - ASTHMA [None]
